FAERS Safety Report 4560002-1 (Version None)
Quarter: 2005Q1

REPORT INFORMATION
  Report Type: 
  Country: None (occurrence: None)
  Receive Date: 20050120
  Receipt Date: 20050120
  Transmission Date: 20050727
  Serious: No
  Sender: FDA-Public Use
  Company Number: None

PATIENT
  Age: 84 Year
  Sex: Male
  Weight: 92 kg

DRUGS (1)
  1. BETHANECHOL CHLORIDE [Suspect]
     Indication: URINARY RETENTION
     Dosage: 75MG  PO TID
     Route: 048
     Dates: start: 20041015

REACTIONS (3)
  - DYSURIA [None]
  - POLLAKIURIA [None]
  - URINARY INCONTINENCE [None]
